FAERS Safety Report 13095146 (Version 1)
Quarter: 2017Q1

REPORT INFORMATION
  Report Type: Other
  Country: None (occurrence: US)
  Receive Date: 20170107
  Receipt Date: 20170107
  Transmission Date: 20170428
  Serious: Yes (Life-Threatening)
  Sender: FDA-Public Use
  Company Number: US-GRANULES INDIA LIMITED-1061703

PATIENT
  Age: 30 Year
  Sex: Male

DRUGS (2)
  1. NALBUPHINE HYDROCHLORIDE. [Concomitant]
     Active Substance: NALBUPHINE HYDROCHLORIDE
  2. IBUPROFEN. [Suspect]
     Active Substance: IBUPROFEN
     Indication: COSTOCHONDRITIS

REACTIONS (1)
  - Stevens-Johnson syndrome [Unknown]
